FAERS Safety Report 9854662 (Version 1)
Quarter: 2014Q1

REPORT INFORMATION
  Report Type: Spontaneous
  Country: US (occurrence: US)
  Receive Date: 20140130
  Receipt Date: 20140130
  Transmission Date: 20141002
  Serious: No
  Sender: FDA-Public Use
  Company Number: US-BIOGENIDEC-2014BI008174

PATIENT
  Age: 40 Year
  Sex: Female

DRUGS (12)
  1. TECFIDERA [Suspect]
     Indication: MULTIPLE SCLEROSIS
     Route: 048
     Dates: start: 201311
  2. BUPROPRION [Concomitant]
  3. FLUTICASONE [Concomitant]
  4. ONDANSETRON [Concomitant]
  5. ALPRAZOLAM [Concomitant]
  6. VITAMIN B12 [Concomitant]
  7. MODAFINIL [Concomitant]
  8. AMANTADINE [Concomitant]
  9. EXCEDRIN [Concomitant]
  10. TYLENOL [Concomitant]
  11. XANAX [Concomitant]
  12. MIRALAX [Concomitant]

REACTIONS (6)
  - Constipation [Unknown]
  - Amnesia [Unknown]
  - Parosmia [Unknown]
  - Abdominal pain upper [Unknown]
  - Nausea [Unknown]
  - Flushing [Unknown]
